FAERS Safety Report 10029283 (Version 2)
Quarter: 2014Q1

REPORT INFORMATION
  Report Type: Spontaneous
  Country: US (occurrence: US)
  Receive Date: 20140321
  Receipt Date: 20140321
  Transmission Date: 20141002
  Serious: Yes (Death)
  Sender: FDA-Public Use
  Company Number: US-GE HEALTHCARE MEDICAL DIAGNOSTICS-OSCN-PR-0907S-0366

PATIENT
  Age: 56 Year
  Sex: Female

DRUGS (2)
  1. OMNISCAN [Suspect]
     Indication: DIZZINESS
     Route: 065
     Dates: start: 20041006, end: 20041006
  2. GADOLINIUM (UNSPECIFIED) [Suspect]
     Indication: PRODUCT USED FOR UNKNOWN INDICATION
     Route: 065
     Dates: start: 20030804, end: 20030804

REACTIONS (1)
  - Nephrogenic systemic fibrosis [Fatal]
